FAERS Safety Report 12470353 (Version 1)
Quarter: 2016Q2

REPORT INFORMATION
  Report Type: Spontaneous
  Country: US (occurrence: US)
  Receive Date: 20160616
  Receipt Date: 20160616
  Transmission Date: 20160815
  Serious: No
  Sender: FDA-Public Use
  Company Number: US-BIOGEN-2016BI00249681

PATIENT
  Sex: Female

DRUGS (3)
  1. TECFIDERA [Suspect]
     Active Substance: DIMETHYL FUMARATE
     Indication: MULTIPLE SCLEROSIS
     Route: 065
     Dates: start: 20131028
  2. COPAXONE [Concomitant]
     Active Substance: GLATIRAMER ACETATE
     Indication: INJECTION
     Route: 065
  3. REBIF [Concomitant]
     Active Substance: INTERFERON BETA-1A
     Indication: WHITE BLOOD CELL COUNT
     Route: 065

REACTIONS (5)
  - Memory impairment [Not Recovered/Not Resolved]
  - Paraesthesia [Not Recovered/Not Resolved]
  - Amblyopia [Not Recovered/Not Resolved]
  - Visual field defect [Not Recovered/Not Resolved]
  - Multiple sclerosis [Not Recovered/Not Resolved]
